FAERS Safety Report 5529868-2 (Version None)
Quarter: 2007Q4

REPORT INFORMATION
  Report Type: 
  Country: None (occurrence: None)
  Receive Date: 20071129
  Receipt Date: 20070228
  Transmission Date: 20080405
  Serious: No
  Sender: FDA-Public Use
  Company Number: US-ABBOTT-07P-163-0361245-00

PATIENT
  Sex: Female
  Weight: 86.26 kg

DRUGS (1)
  1. MERIDIA [Suspect]
     Indication: WEIGHT CONTROL
     Route: 048
     Dates: start: 20070201

REACTIONS (2)
  - ACCIDENTAL OVERDOSE [None]
  - FEELING ABNORMAL [None]
